FAERS Safety Report 9592215 (Version 2)
Quarter: 2013Q4

REPORT INFORMATION
  Report Type: Spontaneous
  Country: US (occurrence: US)
  Receive Date: 20131004
  Receipt Date: 20131017
  Transmission Date: 20140711
  Serious: No
  Sender: FDA-Public Use
  Company Number: US-009507513-1309USA007128

PATIENT
  Age: 24 Year
  Sex: Female
  Weight: 115.19 kg

DRUGS (2)
  1. NEXPLANON [Suspect]
     Indication: CONTRACEPTION
     Dosage: UNK
     Route: 059
     Dates: start: 20130418
  2. LORAZEPAM [Concomitant]
     Indication: ANXIETY

REACTIONS (6)
  - Weight loss diet [Unknown]
  - Dyspareunia [Unknown]
  - Menorrhagia [Not Recovered/Not Resolved]
  - Amenorrhoea [Recovered/Resolved]
  - Dizziness [Unknown]
  - Migraine [Unknown]
